FAERS Safety Report 19570872 (Version 2)
Quarter: 2021Q3

REPORT INFORMATION
  Report Type: Spontaneous
  Country: JP (occurrence: JP)
  Receive Date: 20210716
  Receipt Date: 20210806
  Transmission Date: 20211014
  Serious: Yes (Hospitalization)
  Sender: FDA-Public Use
  Company Number: JP-ASTRAZENECA-2021A613004

PATIENT
  Age: 68 Year
  Sex: Male
  Weight: 40 kg

DRUGS (7)
  1. QUETIAPINE. [Concomitant]
     Active Substance: QUETIAPINE
     Dosage: NUMBER OF SEPARATE DOSAGES UNKNOWN
     Route: 065
  2. SULPIRIDE [Concomitant]
     Active Substance: SULPIRIDE
     Dosage: NUMBER OF SEPARATE DOSAGES UNKNOWN
     Route: 065
  3. ZOLPIDEM TARTRATE. [Concomitant]
     Active Substance: ZOLPIDEM TARTRATE
     Dosage: NUMBER OF SEPARATE DOSAGES UNKNOWN
     Route: 065
  4. TRYPTANOL [Concomitant]
     Active Substance: AMITRIPTYLINE
     Dosage: NUMBER OF SEPARATE DOSAGES UNKNOWN
     Route: 065
  5. DIAZEPAM. [Concomitant]
     Active Substance: DIAZEPAM
     Dosage: NUMBER OF SEPARATE DOSAGES UNKNOWN
     Route: 065
  6. TAGRISSO [Suspect]
     Active Substance: OSIMERTINIB
     Indication: NON-SMALL CELL LUNG CANCER STAGE IIIB
     Route: 048
     Dates: start: 201912, end: 202009
  7. TRAMAL [Concomitant]
     Active Substance: TRAMADOL
     Dosage: NUMBER OF SEPARATE DOSAGES UNKNOWN
     Route: 065

REACTIONS (6)
  - Paronychia [Recovering/Resolving]
  - Pruritus [Recovering/Resolving]
  - Diarrhoea [Recovering/Resolving]
  - Decreased appetite [Recovering/Resolving]
  - Depressive symptom [Recovering/Resolving]
  - Rash [Recovering/Resolving]

NARRATIVE: CASE EVENT DATE: 20200404
